FAERS Safety Report 9527635 (Version 1)
Quarter: 2013Q1

REPORT INFORMATION
  Report Type: Spontaneous
  Country: US (occurrence: None)
  Receive Date: 20130314
  Receipt Date: 20130314
  Transmission Date: 20140127
  Serious: No
  Sender: FDA-Public Use
  Company Number: 1211USA006242

PATIENT
  Sex: Female
  Weight: 56.7 kg

DRUGS (5)
  1. PEGINTRON [Suspect]
     Route: 058
  2. VICTRELIS (BOCEPREVIR) CAPSULE, 200MG [Suspect]
     Dosage: 4 DF,TID.
     Route: 048
  3. PEG-INTRON (PEGINTERFERON ALFA-2B), 50 MICROGRAM [Concomitant]
  4. RIBAPAK (RIBAVIRIN) [Concomitant]
  5. RIBAPAK (RIBAVIRIN) [Concomitant]

REACTIONS (4)
  - Discomfort [None]
  - Impaired work ability [None]
  - Musculoskeletal discomfort [None]
  - Heart rate increased [None]
